FAERS Safety Report 5764284-X (Version None)
Quarter: 2008Q2

REPORT INFORMATION
  Report Type: 
  Country: None (occurrence: None)
  Receive Date: 20080610
  Receipt Date: 20071206
  Transmission Date: 20081010
  Serious: No
  Sender: FDA-Public Use
  Company Number: US-BOEHRINGER INGELHEIM GMBH, GERMANY-2007-BP-06141BP

PATIENT
  Sex: Male
  Weight: 103 kg

DRUGS (7)
  1. MIRAPEX [Suspect]
     Indication: PARKINSON'S DISEASE
     Route: 048
     Dates: start: 19920101, end: 19970101
  2. MIRAPEX [Suspect]
     Dates: start: 19990101, end: 20030601
  3. SINEMET [Concomitant]
     Indication: PARKINSON'S DISEASE
  4. TASMAR [Concomitant]
  5. ALDORIL 15 [Concomitant]
  6. COMTAN [Concomitant]
  7. ELDEPRYL [Concomitant]

REACTIONS (6)
  - ANXIETY [None]
  - DEPRESSION [None]
  - EMOTIONAL DISTRESS [None]
  - FEELING GUILTY [None]
  - PATHOLOGICAL GAMBLING [None]
  - STRESS [None]
